FAERS Safety Report 6718684-1 (Version None)
Quarter: 2010Q2

REPORT INFORMATION
  Report Type: 
  Country: None (occurrence: None)
  Receive Date: 20100506
  Receipt Date: 20100430
  Transmission Date: 20101027
  Serious: Yes (Death)
  Sender: FDA-Public Use
  Company Number: 2010US001480

PATIENT
  Age: 68 Year
  Sex: Male

DRUGS (8)
  1. PROGRAF [Suspect]
     Indication: LIVER TRANSPLANT
     Dosage: 0.5 MG, UID/QD, ORAL
     Route: 048
  2. LOPRESSOR [Concomitant]
  3. IINSULIN (INSULIN) [Concomitant]
  4. KEPPRA [Concomitant]
  5. NEURONTIN [Concomitant]
  6. LACTULOSE [Concomitant]
  7. SEROQUEL [Concomitant]
  8. PEPCID [Concomitant]

REACTIONS (1)
  - HEPATIC NEOPLASM MALIGNANT [None]
